FAERS Safety Report 19089352 (Version 1)
Quarter: 2021Q2

REPORT INFORMATION
  Report Type: Spontaneous
  Country: US (occurrence: US)
  Receive Date: 20210403
  Receipt Date: 20210403
  Transmission Date: 20210717
  Serious: Yes (Hospitalization, Other)
  Sender: FDA-Public Use
  Company Number: US-CIPLA LTD.-2021US02567

PATIENT

DRUGS (5)
  1. MELPHALAN. [Suspect]
     Active Substance: MELPHALAN
     Dosage: 4.5 MILLIGRAM (FOR LEFT EYE IN CYCLE 4 AND FOR RIGHT EYE IN CYCLE 3 AND 5)
     Route: 013
  2. MELPHALAN. [Suspect]
     Active Substance: MELPHALAN
     Indication: CONGENITAL RETINOBLASTOMA
     Dosage: 4 MILLIGRAM (FOR LEFT EYE IN CYCLE 1 AND 2)
     Route: 013
  3. TOPOTECAN [Suspect]
     Active Substance: TOPOTECAN HYDROCHLORIDE
     Indication: CONGENITAL RETINOBLASTOMA
     Dosage: 2 MILLIGRAM (FOR LEFT EYE IN CYCLES 1, 3, 4 AND FOR RIGHT EYE IN CYCLES 2, 6)
     Route: 013
  4. CARBOPLATIN. [Suspect]
     Active Substance: CARBOPLATIN
     Indication: CONGENITAL RETINOBLASTOMA
     Dosage: 50 MILLIGRAM (FOR RIGHT EYE IN CYCLES 1, 2, 4 AND 6 AND, FOR LEFT EYE IN CYCLES 3, 5 AND 7)
     Route: 013
  5. MELPHALAN. [Suspect]
     Active Substance: MELPHALAN
     Dosage: 4.8 MILLIGRAM (FOR LEFT EYE IN CYCLE 6 AND FOR RIGHT EYE IN CYCLE 7)
     Route: 013

REACTIONS (6)
  - Rash [Unknown]
  - Neutropenia [Unknown]
  - Swelling of eyelid [Unknown]
  - Pyrexia [Unknown]
  - Cytopenia [Unknown]
  - Toxicity to various agents [Unknown]
